FAERS Safety Report 16124738 (Version 2)
Quarter: 2019Q2

REPORT INFORMATION
  Report Type: Spontaneous
  Country: DE (occurrence: DE)
  Receive Date: 20190327
  Receipt Date: 20190402
  Transmission Date: 20190711
  Serious: Yes (Life-Threatening, Hospitalization)
  Sender: FDA-Public Use
  Company Number: DE-ELI_LILLY_AND_COMPANY-DE201903013526

PATIENT
  Age: 79 Year
  Sex: Male
  Weight: 90 kg

DRUGS (1)
  1. ERBITUX [Suspect]
     Active Substance: CETUXIMAB
     Indication: RECTAL CANCER
     Dosage: 800 MG, UNK
     Route: 042

REACTIONS (5)
  - Bronchospasm [Recovered/Resolved]
  - Tachycardia [Recovered/Resolved]
  - Syncope [Recovered/Resolved]
  - Peripheral vascular disorder [Recovered/Resolved]
  - Vomiting [Recovered/Resolved]

NARRATIVE: CASE EVENT DATE: 20190121
